FAERS Safety Report 5377471-X (Version None)
Quarter: 2007Q3

REPORT INFORMATION
  Report Type: 
  Country: None (occurrence: None)
  Receive Date: 20070703
  Receipt Date: 20070625
  Transmission Date: 20080115
  Serious: Yes (Death)
  Sender: FDA-Public Use
  Company Number: US-AMGEN-US231011

PATIENT
  Sex: Male

DRUGS (8)
  1. NEULASTA [Suspect]
     Indication: CHEMOTHERAPY
     Route: 058
     Dates: start: 20060918
  2. ARANESP [Suspect]
     Indication: ANAEMIA OF MALIGNANT DISEASE
     Route: 058
     Dates: start: 20060308
  3. GEMZAR [Suspect]
     Route: 065
  4. TAXOL [Concomitant]
     Route: 065
  5. CARBOPLATIN [Concomitant]
     Route: 065
  6. ALIMTA [Concomitant]
     Route: 065
  7. TAXOTERE [Concomitant]
     Route: 065
  8. NAVELBINE [Concomitant]
     Route: 065

REACTIONS (1)
  - LUNG NEOPLASM MALIGNANT [None]
